FAERS Safety Report 5270281-3 (Version None)
Quarter: 2007Q1

REPORT INFORMATION
  Report Type: 
  Country: None (occurrence: None)
  Receive Date: 20070320
  Receipt Date: 20070319
  Transmission Date: 20070707
  Serious: Yes (Death, Hospitalization)
  Sender: FDA-Public Use
  Company Number: US-BRISTOL-MYERS SQUIBB COMPANY-13718937

PATIENT
  Age: 101 Year
  Sex: Female

DRUGS (4)
  1. COUMADIN [Suspect]
  2. PROCRIT [Suspect]
     Indication: ANAEMIA
  3. OXYGEN [Concomitant]
     Indication: RESPIRATORY FAILURE
  4. INSULIN [Concomitant]

REACTIONS (2)
  - PNEUMONIA [None]
  - RENAL FAILURE [None]
